FAERS Safety Report 24181275 (Version 1)
Quarter: 2024Q3

REPORT INFORMATION
  Report Type: Spontaneous
  Country: GR (occurrence: GR)
  Receive Date: 20240807
  Receipt Date: 20240807
  Transmission Date: 20241016
  Serious: Yes (Other)
  Sender: CHATTEM
  Company Number: GR-OPELLA-2024OHG025948

PATIENT
  Age: 43 Year
  Sex: Female

DRUGS (3)
  1. XYZAL ALLERGY 24HR [Suspect]
     Active Substance: LEVOCETIRIZINE DIHYDROCHLORIDE
     Indication: Photosensitivity reaction
     Route: 048
  2. XYZAL ALLERGY 24HR [Suspect]
     Active Substance: LEVOCETIRIZINE DIHYDROCHLORIDE
     Indication: Off label use
     Dosage: 5 MG, QD
     Route: 048
     Dates: start: 20240702, end: 20240702
  3. MEBEVERINE [Concomitant]
     Active Substance: MEBEVERINE
     Indication: Product used for unknown indication
     Dates: start: 20240704

REACTIONS (5)
  - Tendonitis [Recovering/Resolving]
  - Somnolence [Recovered/Resolved]
  - Gastrointestinal pain [Not Recovered/Not Resolved]
  - Syncope [Recovered/Resolved]
  - Off label use [Unknown]

NARRATIVE: CASE EVENT DATE: 20240702
